FAERS Safety Report 4810536-7 (Version None)
Quarter: 2005Q4

REPORT INFORMATION
  Report Type: 
  Country: None (occurrence: None)
  Receive Date: 20051025
  Receipt Date: 20051025
  Transmission Date: 20060501
  Serious: Yes (Other)
  Sender: FDA-Public Use
  Company Number: None

PATIENT
  Age: 76 Year
  Sex: Male
  Weight: 60.9 kg

DRUGS (28)
  1. FENTANYL [Suspect]
  2. POTASSIUM CHLORIDE [Concomitant]
  3. ASPIRIN [Concomitant]
  4. HYDROCHLOROTHIAZIDE [Concomitant]
  5. SYNTHROID [Concomitant]
  6. OMEPRAZOLE [Concomitant]
  7. FENTANYL [Concomitant]
  8. DOCUSATE/SENNOSIDES [Concomitant]
  9. ENEMA, PHOSPHATE ENEMA [Concomitant]
  10. NITROGLYCERIN [Concomitant]
  11. ACETAMINOPHEN [Concomitant]
  12. OXYCODONE [Concomitant]
  13. PSYLLIUM SUGAR FREE POWDER [Concomitant]
  14. FERROUS SULFATE TAB [Concomitant]
  15. KETOCONAZOLE [Concomitant]
  16. HYDROCORTISONE [Concomitant]
  17. MILK OF MAGNESIA TAB [Concomitant]
  18. POTASSIUM CHLORIDE [Concomitant]
  19. OLANZAPINE [Concomitant]
  20. MULTIVITAMIN-MINERAL THERAPEUTIC [Concomitant]
  21. DIVALPROEX SODIUM [Concomitant]
  22. PHENOBARBITAL TAB [Concomitant]
  23. LEVOTHYROXINE SODIUM [Concomitant]
  24. HYDROCHLOROTHIAZIDE [Concomitant]
  25. FOSINOPRIL SODIUM [Concomitant]
  26. FELODIPINE [Concomitant]
  27. ASPIRIN [Concomitant]
  28. LORAZEPAM [Concomitant]

REACTIONS (2)
  - EYE PRURITUS [None]
  - LACRIMATION INCREASED [None]
